FAERS Safety Report 25337830 (Version 1)
Quarter: 2025Q2

REPORT INFORMATION
  Report Type: Spontaneous
  Country: US (occurrence: US)
  Receive Date: 20250520
  Receipt Date: 20250520
  Transmission Date: 20250716
  Serious: No
  Sender: COREPHARMA LLC
  Company Number: US-CorePharma LLC-2177062

PATIENT

DRUGS (1)
  1. LISINOPRIL [Suspect]
     Active Substance: LISINOPRIL
     Indication: Blood pressure measurement

REACTIONS (7)
  - Dry throat [Recovering/Resolving]
  - Panic reaction [Recovering/Resolving]
  - Hypersensitivity [Recovering/Resolving]
  - Oral mucosal erythema [Recovering/Resolving]
  - Enlarged uvula [Recovering/Resolving]
  - Obstructive airways disorder [Recovering/Resolving]
  - Dysphagia [Recovering/Resolving]
